FAERS Safety Report 10786009 (Version 1)
Quarter: 2015Q1

REPORT INFORMATION
  Report Type: Spontaneous
  Country: US (occurrence: US)
  Receive Date: 20150211
  Receipt Date: 20150211
  Transmission Date: 20150721
  Serious: No
  Sender: FDA-Public Use
  Company Number: US-EISAI MEDICAL RESEARCH-EC-2015-003745

PATIENT
  Sex: Female
  Weight: 47.6 kg

DRUGS (1)
  1. ARICEPT [Suspect]
     Active Substance: DONEPEZIL HYDROCHLORIDE
     Indication: AMNESIA
     Dosage: UNKNOWN
     Route: 048

REACTIONS (2)
  - Personality change [Not Recovered/Not Resolved]
  - Irritability [Not Recovered/Not Resolved]
